FAERS Safety Report 8722787 (Version 2)
Quarter: 2012Q4

REPORT INFORMATION
  Report Type: 
  Country: JP (occurrence: JP)
  Receive Date: 20120814
  Receipt Date: 20120830
  Transmission Date: 20130627
  Serious: No
  Sender: FDA-Public Use
  Company Number: JP-GLAXOSMITHKLINE-B0821899A

PATIENT
  Age: 70 Year
  Sex: Male

DRUGS (8)
  1. LAMICTAL [Suspect]
     Indication: CENTRAL PAIN SYNDROME
     Dosage: 50MG Per day
     Route: 048
     Dates: start: 20120703, end: 20120715
  2. ADALAT-CR [Concomitant]
     Dosage: 25MG Per day
     Route: 048
  3. BLOPRESS [Concomitant]
     Dosage: 4MG Per day
     Route: 048
  4. ARTIST [Concomitant]
     Dosage: 5MG Per day
     Route: 048
  5. BAYASPIRIN [Concomitant]
     Dosage: 200MG Per day
     Route: 048
  6. LIPITOR [Concomitant]
     Dosage: 5MG Per day
     Route: 048
  7. GASPORT [Concomitant]
     Dosage: 20MG Per day
     Route: 048
  8. PHENOBAL [Concomitant]
     Route: 065

REACTIONS (2)
  - Drug eruption [Recovered/Resolved]
  - Rash generalised [Recovered/Resolved]
